FAERS Safety Report 23741575 (Version 1)
Quarter: 2024Q2

REPORT INFORMATION
  Report Type: Spontaneous
  Country: SK (occurrence: SK)
  Receive Date: 20240415
  Receipt Date: 20240415
  Transmission Date: 20240715
  Serious: Yes (Life-Threatening, Hospitalization, Other)
  Sender: FDA-Public Use
  Company Number: SK-Long Grove-000045

PATIENT
  Age: 32 Year
  Sex: Male

DRUGS (4)
  1. NOREPINEPHRINE [Suspect]
     Active Substance: NOREPINEPHRINE\NOREPINEPHRINE BITARTRATE
     Indication: Haematemesis
     Dosage: 0.5 MICROG/KG/MIN
  2. VASOPRESSIN [Suspect]
     Active Substance: VASOPRESSIN
     Indication: Haematemesis
     Dosage: 4 ML/HOUR
  3. NOREPINEPHRINE [Suspect]
     Active Substance: NOREPINEPHRINE\NOREPINEPHRINE BITARTRATE
     Indication: Haematemesis
     Dosage: 1 MICRO G/KG/MIN.
  4. NOREPINEPHRINE [Suspect]
     Active Substance: NOREPINEPHRINE\NOREPINEPHRINE BITARTRATE
     Indication: Haematemesis
     Dosage: 0.5 MCG/KG/MIN W

REACTIONS (1)
  - Necrosis ischaemic [Unknown]
